FAERS Safety Report 6554290-X (Version None)
Quarter: 2010Q1

REPORT INFORMATION
  Report Type: 
  Country: None (occurrence: None)
  Receive Date: 20100125
  Receipt Date: 20100125
  Transmission Date: 20100710
  Serious: Yes (Life-Threatening, Hospitalization, Disabling, Other)
  Sender: FDA-Public Use
  Company Number: None

PATIENT
  Sex: Male
  Weight: 86.1834 kg

DRUGS (1)
  1. LISINOPRIL 40MG VA [Suspect]
     Dosage: 1/2 PILL PER DAY PO
     Route: 048
     Dates: start: 20031003, end: 20091206

REACTIONS (2)
  - MALAISE [None]
  - MYOCARDIAL INFARCTION [None]
